FAERS Safety Report 7301357-4 (Version None)
Quarter: 2011Q1

REPORT INFORMATION
  Report Type: 
  Country: None (occurrence: None)
  Receive Date: 20110113
  Receipt Date: 20100915
  Transmission Date: 20110831
  Serious: No
  Sender: FDA-Public Use
  Company Number: US-001251

PATIENT
  Sex: Female
  Weight: 67.9 kg

DRUGS (3)
  1. NUTRIENTS WITHOUT PHENYLALANINE [Concomitant]
  2. KUVAN [Suspect]
     Indication: PHENYLKETONURIA
     Dosage: (1300 MG QD ORAL) (10 MG/KG QD ORAL)
     Route: 048
     Dates: start: 20100830
  3. KUVAN [Suspect]
     Indication: PHENYLKETONURIA
     Dosage: (1300 MG QD ORAL) (10 MG/KG QD ORAL)
     Route: 048
     Dates: start: 20100801, end: 20100810

REACTIONS (2)
  - MIGRAINE [None]
  - ABDOMINAL DISCOMFORT [None]
